FAERS Safety Report 19194970 (Version 1)
Quarter: 2021Q2

REPORT INFORMATION
  Report Type: Spontaneous
  Country: AU (occurrence: AU)
  Receive Date: 20210429
  Receipt Date: 20210429
  Transmission Date: 20210717
  Serious: Yes (Life-Threatening, Hospitalization)
  Sender: FDA-Public Use
  Company Number: AU-MYLANLABS-2021M1025377

PATIENT
  Age: 19 Year
  Sex: Female

DRUGS (1)
  1. VALPROIC ACID. [Suspect]
     Active Substance: VALPROIC ACID
     Indication: BIPOLAR DISORDER
     Dosage: 40 GRAM, FORMULATION: IMMEDIATE RELEASE
     Route: 048

REACTIONS (4)
  - Acidosis [Recovered/Resolved]
  - Overdose [Recovered/Resolved]
  - Hyperammonaemia [Recovered/Resolved]
  - Respiratory depression [Recovered/Resolved]
